FAERS Safety Report 9903034 (Version 2)
Quarter: 2014Q1

REPORT INFORMATION
  Report Type: Spontaneous
  Country: HR (occurrence: HR)
  Receive Date: 20140217
  Receipt Date: 20140217
  Transmission Date: 20141002
  Serious: Yes (Hospitalization)
  Sender: FDA-Public Use
  Company Number: PHHY2013HR150567

PATIENT
  Sex: Male

DRUGS (1)
  1. GILENYA [Suspect]
     Dosage: 0.5 MG, DAILY
     Route: 048
     Dates: start: 20130613

REACTIONS (6)
  - Multiple sclerosis relapse [Recovering/Resolving]
  - CD4/CD8 ratio decreased [Unknown]
  - Lymphocyte count abnormal [Unknown]
  - Immunosuppression [Unknown]
  - Nasopharyngitis [Not Recovered/Not Resolved]
  - Gamma-glutamyltransferase increased [Unknown]
